FAERS Safety Report 6831005-9 (Version None)
Quarter: 2010Q3

REPORT INFORMATION
  Report Type: 
  Country: None (occurrence: None)
  Receive Date: 20100712
  Receipt Date: 20070411
  Transmission Date: 20110219
  Serious: No
  Sender: FDA-Public Use
  Company Number: US-PFIZER INC-2007006278

PATIENT
  Sex: Male
  Weight: 83.01 kg

DRUGS (4)
  1. CHANTIX [Suspect]
     Indication: SMOKING CESSATION THERAPY
     Dates: start: 20070101, end: 20070405
  2. ZOCOR [Concomitant]
  3. GEMFIBROZIL [Concomitant]
  4. VITAMINS [Concomitant]

REACTIONS (3)
  - DEPENDENCE [None]
  - IRRITABILITY [None]
  - WEIGHT INCREASED [None]
